FAERS Safety Report 24583625 (Version 1)
Quarter: 2024Q4

REPORT INFORMATION
  Report Type: Spontaneous
  Country: PL (occurrence: PL)
  Receive Date: 20241106
  Receipt Date: 20241106
  Transmission Date: 20250114
  Serious: Yes (Hospitalization, Other)
  Sender: ACCORD
  Company Number: PL-EMA-DD-20241008-7482643-084533

PATIENT
  Age: 66 Year
  Sex: Female

DRUGS (10)
  1. CARBOPLATIN [Suspect]
     Active Substance: CARBOPLATIN
     Indication: Squamous cell carcinoma of lung
     Dosage: AREA UNDER THE CURVE (AUC) OF 5 MG/ML/MIN) Q3W
     Dates: start: 2021
  2. PACLITAXEL [Suspect]
     Active Substance: PACLITAXEL
     Indication: Squamous cell carcinoma of lung
     Dosage: 175 MILLIGRAM/SQ. METER, Q3W
     Dates: start: 2021
  3. PEMBROLIZUMAB [Suspect]
     Active Substance: PEMBROLIZUMAB
     Indication: Squamous cell carcinoma of lung
     Dosage: 200 MILLIGRAM, Q3W
     Dates: start: 20210301, end: 2021
  4. BISOPROLOL [Concomitant]
     Active Substance: BISOPROLOL\BISOPROLOL FUMARATE
  5. GLIMEPIRIDE [Concomitant]
     Active Substance: GLIMEPIRIDE
  6. VALSARTAN AND HYDROCHLOROTHIAZIDE [Concomitant]
     Active Substance: HYDROCHLOROTHIAZIDE\VALSARTAN
     Dosage: 25 MG (+) 160 MG
  7. METFORMIN [Concomitant]
     Active Substance: METFORMIN HYDROCHLORIDE
  8. CARBOPLATIN [Suspect]
     Active Substance: CARBOPLATIN
     Indication: Squamous cell carcinoma of lung
     Dosage: AREA UNDER THE CURVE (AUC) OF 6 MG/ML/MIN, Q3W
     Dates: start: 20210301, end: 2021
  9. PACLITAXEL [Suspect]
     Active Substance: PACLITAXEL
     Indication: Squamous cell carcinoma of lung
     Dosage: 200 MILLIGRAM/SQ. METER, Q3W
     Dates: start: 20210301, end: 2021
  10. PEMBROLIZUMAB [Suspect]
     Active Substance: PEMBROLIZUMAB
     Indication: Squamous cell carcinoma of lung
     Dosage: 400 MILLIGRAM, EVERY 6 WEEKS
     Dates: start: 2021

REACTIONS (16)
  - Haemangioma of bone [Unknown]
  - Bronchitis bacterial [Unknown]
  - Bone metabolism disorder [Unknown]
  - Rib fracture [Unknown]
  - Therapy partial responder [Unknown]
  - Pulmonary hilar enlargement [Unknown]
  - Hypothyroidism [Recovering/Resolving]
  - Bronchiectasis [Unknown]
  - Anaemia [Unknown]
  - Musculoskeletal disorder [Unknown]
  - Pneumonia haemophilus [Recovering/Resolving]
  - Thyroiditis [Recovering/Resolving]
  - Acute respiratory failure [Recovering/Resolving]
  - Spinal pain [Unknown]
  - Pain [Unknown]
  - Spinal compression fracture [Unknown]

NARRATIVE: CASE EVENT DATE: 20210101
